FAERS Safety Report 21383890 (Version 1)
Quarter: 2022Q3

REPORT INFORMATION
  Report Type: Spontaneous
  Country: FR (occurrence: FR)
  Receive Date: 20220928
  Receipt Date: 20220928
  Transmission Date: 20221027
  Serious: Yes (Death)
  Sender: FDA-Public Use
  Company Number: None

PATIENT
  Age: 26 Year
  Sex: Female
  Weight: 78 kg

DRUGS (10)
  1. PHLOROGLUCINOL [Suspect]
     Active Substance: PHLOROGLUCINOL
     Indication: Pain
     Dosage: UNIT DOSE: 3 DF , DURATION : 1 DAY
     Dates: start: 20220308, end: 20220308
  2. NOREPINEPHRINE [Suspect]
     Active Substance: NOREPINEPHRINE
     Indication: Circulatory collapse
     Dosage: DURATION : 1 DAY
     Dates: start: 20220308, end: 20220308
  3. SUFENTANIL [Suspect]
     Active Substance: SUFENTANIL
     Indication: Epidural analgesia
     Dosage: SUFENTANIL MYLAN 50 MICROGRAMS/ML, UNIT DOSE:  6 ML, DURATION : 1 DAY
     Dates: start: 20220308, end: 20220308
  4. EPHEDRINE HYDROCHLORIDE [Suspect]
     Active Substance: EPHEDRINE HYDROCHLORIDE
     Indication: Hypotension
     Dosage: UNIT DOSE: 27 MG , DURATION  : 1 DAY
     Dates: start: 20220308, end: 20220308
  5. BUPIVACAINE [Suspect]
     Active Substance: BUPIVACAINE
     Indication: Spinal anaesthesia
     Dosage: BUPIVACAINE MYLAN 20 MG / 4 ML, SOLUTION FOR INJECTION FOR INTRA SPINAL ROUTE IN AMPOULE, DURATION :
     Dates: start: 20220308, end: 20220308
  6. SUFENTANIL [Suspect]
     Active Substance: SUFENTANIL
     Indication: Spinal anaesthesia
     Dosage: UNIT DOSE: 110 MCG, DURATION : 1 DAY
     Dates: start: 20220308, end: 20220308
  7. OXYTOCIN [Suspect]
     Active Substance: OXYTOCIN
     Indication: Uterine hypotonus
     Dosage: UNKNOWN, DURATION :1 DAY
     Dates: start: 20220308, end: 20220308
  8. PHENYLEPHRINE [Suspect]
     Active Substance: PHENYLEPHRINE HYDROCHLORIDE
     Indication: Circulatory collapse
     Dosage: UNIT DOSE: 200 MCG , DURATION : 1 DAY
     Dates: start: 20220308, end: 20220308
  9. ROPIVACAINE HYDROCHLORIDE [Suspect]
     Active Substance: ROPIVACAINE HYDROCHLORIDE
     Indication: Epidural analgesia
     Dosage: UNIT DOSE: 60 ML , DURATION : 1 DAY
     Dates: start: 20220308, end: 20220308
  10. EPINEPHRINE\LIDOCAINE [Suspect]
     Active Substance: EPINEPHRINE\LIDOCAINE
     Indication: Epidural anaesthesia
     Dosage: XYLOCAINE 1 PER CENT (200 MG/20 ML) ADRENALINE, SOLUTION FOR INJECTION IN VIAL, UNIT DOSE: 8 ML , DU
     Dates: start: 20220308, end: 20220308

REACTIONS (1)
  - Cardio-respiratory arrest [Fatal]

NARRATIVE: CASE EVENT DATE: 20220308
